FAERS Safety Report 11636728 (Version 3)
Quarter: 2015Q4

REPORT INFORMATION
  Report Type: Spontaneous
  Country: JP (occurrence: JP)
  Receive Date: 20151016
  Receipt Date: 20151105
  Transmission Date: 20160304
  Serious: Yes (Hospitalization, Other)
  Sender: FDA-Public Use
  Company Number: JP-GLAXOSMITHKLINE-JP2015JPN145289

PATIENT
  Age: 78 Year
  Sex: Male

DRUGS (3)
  1. REQUIP [Suspect]
     Active Substance: ROPINIROLE HYDROCHLORIDE
     Indication: PARKINSON^S DISEASE
     Dosage: 8 MG, QD
     Route: 048
  2. FP (JAPAN) [Concomitant]
  3. BAYASPIRIN [Concomitant]
     Active Substance: ASPIRIN

REACTIONS (3)
  - Decreased appetite [Recovered/Resolved]
  - Volvulus [Recovered/Resolved]
  - Gastrointestinal necrosis [Unknown]

NARRATIVE: CASE EVENT DATE: 20151001
